FAERS Safety Report 25549822 (Version 1)
Quarter: 2025Q3

REPORT INFORMATION
  Report Type: Spontaneous
  Country: US (occurrence: US)
  Receive Date: 20250714
  Receipt Date: 20250714
  Transmission Date: 20251021
  Serious: No
  Sender: NOVO NORDISK
  Company Number: US-NOVOPROD-1438619

PATIENT
  Sex: Male

DRUGS (2)
  1. SEMAGLUTIDE [Suspect]
     Active Substance: SEMAGLUTIDE
  2. SEMAGLUTIDE [Suspect]
     Active Substance: SEMAGLUTIDE
     Indication: Weight control
     Route: 058
     Dates: start: 202202, end: 20250510

REACTIONS (7)
  - Decreased appetite [Recovered/Resolved]
  - Nausea [Recovered/Resolved]
  - Counterfeit product administered [Unknown]
  - Off label use [Recovered/Resolved]
  - Off label use [Unknown]
  - Inappropriate schedule of product administration [Recovered/Resolved]
  - Product use issue [Unknown]

NARRATIVE: CASE EVENT DATE: 20220201
